FAERS Safety Report 13908429 (Version 2)
Quarter: 2017Q3

REPORT INFORMATION
  Report Type: Report from Study
  Country: US (occurrence: US)
  Receive Date: 20170826
  Receipt Date: 20170901
  Transmission Date: 20171127
  Serious: No
  Sender: FDA-Public Use
  Company Number: US-AMGEN-USASP2017124823

PATIENT
  Age: 58 Year
  Sex: Female

DRUGS (2)
  1. SYNTHROID [Concomitant]
     Active Substance: LEVOTHYROXINE SODIUM
     Indication: THYROID DISORDER
     Dosage: 75 MUG, QD
  2. ENBREL [Suspect]
     Active Substance: ETANERCEPT
     Indication: RHEUMATOID ARTHRITIS
     Dosage: 50 MG, QWK
     Route: 065
     Dates: start: 201707

REACTIONS (5)
  - Musculoskeletal disorder [Not Recovered/Not Resolved]
  - Arthralgia [Not Recovered/Not Resolved]
  - Peripheral swelling [Not Recovered/Not Resolved]
  - Drug effect incomplete [Unknown]
  - Drug dose omission [Unknown]

NARRATIVE: CASE EVENT DATE: 2017
